FAERS Safety Report 21491882 (Version 1)
Quarter: 2022Q4

REPORT INFORMATION
  Report Type: Spontaneous
  Country: CN (occurrence: None)
  Receive Date: 20221021
  Receipt Date: 20221021
  Transmission Date: 20230113
  Serious: Yes (Other)
  Sender: FDA-Public Use
  Company Number: 2022A349719

PATIENT
  Age: 25252 Day
  Sex: Male
  Weight: 59 kg

DRUGS (4)
  1. DURVALUMAB [Suspect]
     Active Substance: DURVALUMAB
     Indication: Lung neoplasm malignant
     Route: 042
     Dates: start: 20220920, end: 20220920
  2. ETOPOSIDE [Suspect]
     Active Substance: ETOPOSIDE
     Indication: Lung neoplasm malignant
     Route: 041
     Dates: start: 20220920, end: 20220924
  3. NEDAPLATIN [Suspect]
     Active Substance: NEDAPLATIN
     Indication: Lung neoplasm malignant
     Route: 041
     Dates: start: 20220920, end: 20220920
  4. SODIUM CHLORIDE [Concomitant]
     Active Substance: SODIUM CHLORIDE
     Route: 041
     Dates: start: 20220920, end: 20220920

REACTIONS (1)
  - Myelosuppression [Recovering/Resolving]

NARRATIVE: CASE EVENT DATE: 20220922
